FAERS Safety Report 9745341 (Version 2)
Quarter: 2013Q4

REPORT INFORMATION
  Report Type: Spontaneous
  Country: US (occurrence: US)
  Receive Date: 20131211
  Receipt Date: 20131219
  Transmission Date: 20140711
  Serious: Yes (Hospitalization)
  Sender: FDA-Public Use
  Company Number: US-JNJFOC-20131201726

PATIENT
  Age: 68 Year
  Sex: Female

DRUGS (4)
  1. XARELTO [Suspect]
     Indication: CEREBROVASCULAR ACCIDENT PROPHYLAXIS
     Dosage: ON FOR 2 MONTHS
     Route: 048
     Dates: start: 20131110
  2. XARELTO [Suspect]
     Indication: ATRIAL FIBRILLATION
     Dosage: ON FOR 2 MONTHS
     Route: 048
     Dates: start: 20131110
  3. ASPIRIN [Suspect]
     Indication: PRODUCT USED FOR UNKNOWN INDICATION
     Route: 065
  4. CLOPIDOGREL [Suspect]
     Indication: PRODUCT USED FOR UNKNOWN INDICATION
     Route: 065

REACTIONS (1)
  - Rectal haemorrhage [Recovering/Resolving]
